FAERS Safety Report 5603940-0 (Version None)
Quarter: 2008Q1

REPORT INFORMATION
  Report Type: 
  Country: None (occurrence: None)
  Receive Date: 20080124
  Receipt Date: 20080124
  Transmission Date: 20080703
  Serious: No
  Sender: FDA-Public Use
  Company Number: None

PATIENT
  Age: 22 Year
  Sex: Female

DRUGS (1)
  1. PENICILLIN VK [Suspect]
     Dosage: 500MG BID ORAL
     Route: 048
     Dates: start: 20080105, end: 20080108

REACTIONS (1)
  - RASH [None]
